FAERS Safety Report 11937959 (Version 1)
Quarter: 2016Q1

REPORT INFORMATION
  Report Type: Report from Study
  Country: US (occurrence: US)
  Receive Date: 20160122
  Receipt Date: 20160122
  Transmission Date: 20160526
  Serious: Yes (Other)
  Sender: FDA-Public Use
  Company Number: US-BRISTOL-MYERS SQUIBB COMPANY-14601900

PATIENT
  Age: 33 Year
  Sex: Female
  Weight: 55.33 kg

DRUGS (2)
  1. ENTECAVIR. [Suspect]
     Active Substance: ENTECAVIR
     Indication: CHRONIC HEPATITIS B
     Dosage: 1 MG, QD
     Route: 048
     Dates: start: 200804
  2. VALTREX [Concomitant]
     Active Substance: VALACYCLOVIR HYDROCHLORIDE
     Indication: GENITAL HERPES
     Dosage: 80 MG, QD
     Route: 048
     Dates: start: 200802

REACTIONS (2)
  - Abortion induced [Unknown]
  - Maternal exposure during pregnancy [Recovered/Resolved]

NARRATIVE: CASE EVENT DATE: 20090119
